FAERS Safety Report 8486085-4 (Version None)
Quarter: 2012Q3

REPORT INFORMATION
  Report Type: 
  Country: None (occurrence: None)
  Receive Date: 20120703
  Receipt Date: 20120622
  Transmission Date: 20120928
  Serious: Yes (Other)
  Sender: FDA-Public Use
  Company Number: JP-SANOFI-AVENTIS-2012SA045736

PATIENT

DRUGS (2)
  1. LANTUS [Suspect]
     Indication: SUICIDE ATTEMPT
     Route: 058
  2. INSULIN [Suspect]
     Indication: SUICIDE ATTEMPT
     Route: 058

REACTIONS (2)
  - ALTERED STATE OF CONSCIOUSNESS [None]
  - INTENTIONAL OVERDOSE [None]
